FAERS Safety Report 11632992 (Version 2)
Quarter: 2015Q4

REPORT INFORMATION
  Report Type: Spontaneous
  Country: US (occurrence: US)
  Receive Date: 20151015
  Receipt Date: 20151120
  Transmission Date: 20160304
  Serious: Yes (Hospitalization, Other)
  Sender: FDA-Public Use
  Company Number: US-SMITH AND NEPHEW, INC-2015SMT00393

PATIENT
  Age: 69 Year
  Sex: Male
  Weight: 108.39 kg

DRUGS (4)
  1. REGRANEX [Suspect]
     Active Substance: BECAPLERMIN
     Indication: WOUND
     Dosage: UNK UNK, 1X/DAY
     Route: 061
     Dates: start: 2015, end: 20150921
  2. REGRANEX [Suspect]
     Active Substance: BECAPLERMIN
     Dosage: UNK
     Route: 061
     Dates: start: 20151103
  3. UNSPECIFIED PROBIOTIC [Concomitant]
  4. UNSPECIFIED INSULIN [Concomitant]
     Active Substance: INSULIN NOS
     Dosage: UNK, 2X/DAY
     Route: 058

REACTIONS (17)
  - Gangrene [Recovered/Resolved]
  - Hypoglycaemia [Unknown]
  - Toe amputation [Recovering/Resolving]
  - Pyrexia [Unknown]
  - Hypokalaemia [Unknown]
  - Peptostreptococcus test positive [None]
  - Escherichia test positive [None]
  - Cellulitis [Unknown]
  - Rash [Unknown]
  - Abscess [Recovered/Resolved]
  - Hyperlipidaemia [Unknown]
  - Culture positive [Unknown]
  - Chills [Unknown]
  - Hypertension [Unknown]
  - Fatigue [Recovered/Resolved]
  - Oedema [Unknown]
  - Enterococcus test positive [None]

NARRATIVE: CASE EVENT DATE: 201509
